FAERS Safety Report 4595983-3 (Version None)
Quarter: 2005Q1

REPORT INFORMATION
  Report Type: 
  Country: None (occurrence: None)
  Receive Date: 20050224
  Receipt Date: 20050123
  Transmission Date: 20050727
  Serious: Yes (Other)
  Sender: FDA-Public Use
  Company Number: EWC050242687

PATIENT
  Age: 67 Year
  Sex: Male

DRUGS (2)
  1. XIGRIS [Suspect]
     Indication: SEPTIC SHOCK
     Dosage: 24 UG/KG/HR
     Dates: start: 20050122, end: 20050123
  2. CALCIPARINE [Concomitant]

REACTIONS (1)
  - PLATELET COUNT DECREASED [None]
